FAERS Safety Report 15043520 (Version 1)
Quarter: 2018Q2

REPORT INFORMATION
  Report Type: Spontaneous
  Country: DE (occurrence: DE)
  Receive Date: 20180621
  Receipt Date: 20180621
  Transmission Date: 20180711
  Serious: Yes (Hospitalization)
  Sender: FDA-Public Use
  Company Number: DE-TEVA-2018-DE-908386

PATIENT
  Age: 87 Year
  Sex: Female
  Weight: 65 kg

DRUGS (8)
  1. METOHEXAL SUCC 47,5MG [Suspect]
     Active Substance: METOPROLOL SUCCINATE
     Dosage: 95 MILLIGRAM DAILY;
     Route: 048
  2. ADENURIC 80MG [Concomitant]
     Dosage: 80 MILLIGRAM DAILY;
     Route: 048
  3. XELEVIA 25MG [Concomitant]
     Dosage: 25 MILLIGRAM DAILY;
     Route: 048
  4. ELIQUIS [Concomitant]
     Active Substance: APIXABAN
     Dosage: 10 MILLIGRAM DAILY;
     Route: 048
  5. CANDESARTAN. [Suspect]
     Active Substance: CANDESARTAN
     Dosage: 16 MILLIGRAM DAILY;
     Route: 048
  6. TORASEMIDE [Suspect]
     Active Substance: TORSEMIDE
     Dosage: 10 MILLIGRAM DAILY;
     Route: 048
  7. NEPRESOL (DIHYDRALAZINE SULFATE) [Suspect]
     Active Substance: DIHYDRALAZINE SULFATE
     Dosage: 25 MILLIGRAM DAILY;  0.5-0.5-0.5-0
     Route: 048
  8. SIMVABETA 20MG [Concomitant]
     Dosage: 20 MILLIGRAM DAILY;
     Route: 048

REACTIONS (3)
  - Orthostatic intolerance [Unknown]
  - Drug prescribing error [Unknown]
  - Dizziness [Unknown]
